FAERS Safety Report 9155489 (Version 2)
Quarter: 2013Q2

REPORT INFORMATION
  Report Type: Spontaneous
  Country: US (occurrence: US)
  Receive Date: 20130311
  Receipt Date: 20130411
  Transmission Date: 20140414
  Serious: Yes (Other)
  Sender: FDA-Public Use
  Company Number: US-BAYER-2013-028259

PATIENT
  Age: 61 Year
  Sex: Female
  Weight: 53.97 kg

DRUGS (5)
  1. BAYER ASPIRIN REGIMEN REGULAR 325 MG STRENGTH [Suspect]
     Indication: ANALGESIC THERAPY
     Dosage: UNK
     Route: 048
     Dates: start: 2013
  2. ZYPREXA [Concomitant]
  3. KLONOPIN [Concomitant]
  4. NEURONTIN [Concomitant]
  5. LAMICTAL [Concomitant]

REACTIONS (2)
  - Abnormal loss of weight [None]
  - Abdominal pain [None]
